FAERS Safety Report 7357431-X (Version None)
Quarter: 2011Q1

REPORT INFORMATION
  Report Type: 
  Country: None (occurrence: None)
  Receive Date: 20110314
  Receipt Date: 20110314
  Transmission Date: 20110831
  Serious: Yes (Hospitalization)
  Sender: FDA-Public Use
  Company Number: None

PATIENT
  Sex: Female
  Weight: 49 kg

DRUGS (2)
  1. CISPLATIN [Suspect]
     Dosage: 75 MG
  2. G-CSF (LENOGRASTIM) [Concomitant]

REACTIONS (1)
  - NEUTROPHIL COUNT DECREASED [None]
